FAERS Safety Report 8254773-0 (Version None)
Quarter: 2012Q2

REPORT INFORMATION
  Report Type: 
  Country: None (occurrence: None)
  Receive Date: 20120403
  Receipt Date: 20120328
  Transmission Date: 20120825
  Serious: Yes (Disabling)
  Sender: FDA-Public Use
  Company Number: PHHY2011CA30230

PATIENT
  Sex: Female

DRUGS (6)
  1. LEUCOVORIN CALCIUM [Concomitant]
  2. METHOTREXATE [Concomitant]
  3. NASONEX [Concomitant]
  4. PREMARIN [Concomitant]
  5. ZOLEDRONOC ACID [Suspect]
     Indication: OSTEOPOROSIS
     Dosage: UNK UKN, UNK
     Route: 042
     Dates: start: 20110407
  6. SULFASALAZINE [Concomitant]

REACTIONS (4)
  - RHEUMATOID ARTHRITIS [None]
  - ARTHRITIS [None]
  - INCORRECT DOSE ADMINISTERED [None]
  - PAIN [None]
